FAERS Safety Report 19680267 (Version 1)
Quarter: 2021Q3

REPORT INFORMATION
  Report Type: Spontaneous
  Country: IN (occurrence: IN)
  Receive Date: 20210810
  Receipt Date: 20210810
  Transmission Date: 20211014
  Serious: Yes (Death)
  Sender: FDA-Public Use
  Company Number: IN-PFIZER INC-2020124666

PATIENT
  Age: 55 Year
  Sex: Female

DRUGS (3)
  1. PALBACE [Suspect]
     Active Substance: PALBOCICLIB
     Indication: BREAST CANCER METASTATIC
     Dosage: 125 MG, 1X/DAY
     Route: 048
     Dates: start: 20190301, end: 202105
  2. PALBACE [Suspect]
     Active Substance: PALBOCICLIB
     Dosage: 100 MG
  3. LETROZ [Concomitant]

REACTIONS (1)
  - COVID-19 [Fatal]
